FAERS Safety Report 12586859 (Version 2)
Quarter: 2016Q3

REPORT INFORMATION
  Report Type: Spontaneous
  Country: US (occurrence: US)
  Receive Date: 20160725
  Receipt Date: 20160726
  Transmission Date: 20161109
  Serious: No
  Sender: FDA-Public Use
  Company Number: US-PFIZER INC-2016352714

PATIENT
  Age: 69 Year
  Sex: Female
  Weight: 75 kg

DRUGS (4)
  1. LYRICA [Suspect]
     Active Substance: PREGABALIN
     Indication: NEURALGIA
     Dosage: 150 MG, 3X/DAY (150 MG CAPSULES, 3 TIMES DAILY BY MOUTH)
     Route: 048
     Dates: start: 2014, end: 20160713
  2. LYRICA [Suspect]
     Active Substance: PREGABALIN
     Dosage: 150 MG, 1X/DAY (MORNING DOSE)
     Route: 048
     Dates: start: 20160714, end: 20160714
  3. AMITRIPTYLINE [Concomitant]
     Active Substance: AMITRIPTYLINE
     Indication: NERVE INJURY
     Dosage: 25 MG, DAILY (ONE 25 MG TABLET BY MOUTH IN THE EVENING)
     Route: 048
  4. CLOPIDOGREL [Concomitant]
     Active Substance: CLOPIDOGREL BISULFATE
     Indication: BLOOD VISCOSITY ABNORMAL
     Dosage: 75 MG, 1X/DAY (75 MG ONCE A DAY BY MOUTH)
     Route: 048
     Dates: start: 2009

REACTIONS (11)
  - Tremor [Recovering/Resolving]
  - Arthralgia [Recovering/Resolving]
  - Hyperhidrosis [Recovering/Resolving]
  - Feeling abnormal [Recovering/Resolving]
  - Fatigue [Unknown]
  - Sinus disorder [Recovering/Resolving]
  - Headache [Recovering/Resolving]
  - Feeling of body temperature change [Recovering/Resolving]
  - Bedridden [Unknown]
  - Dizziness [Unknown]
  - Pain [Not Recovered/Not Resolved]

NARRATIVE: CASE EVENT DATE: 20160714
